FAERS Safety Report 6183422-0 (Version None)
Quarter: 2009Q2

REPORT INFORMATION
  Report Type: 
  Country: None (occurrence: None)
  Receive Date: 20090507
  Receipt Date: 20090428
  Transmission Date: 20091009
  Serious: Yes (Death)
  Sender: FDA-Public Use
  Company Number: AT-MERCK-0904AUT00012

PATIENT
  Age: 78 Year
  Sex: Male
  Weight: 65 kg

DRUGS (6)
  1. ZETIA [Suspect]
     Indication: CORONARY ARTERY DISEASE
     Route: 048
     Dates: start: 20060601, end: 20070501
  2. ZETIA [Suspect]
     Indication: HYPERCHOLESTEROLAEMIA
     Route: 048
     Dates: start: 20060601, end: 20070501
  3. BISOPROLOL FUMARATE [Concomitant]
     Indication: CARDIAC FAILURE
     Route: 048
     Dates: end: 20070601
  4. METFORMIN HYDROCHLORIDE [Concomitant]
     Indication: TYPE 2 DIABETES MELLITUS
     Route: 048
     Dates: start: 20000101, end: 20070401
  5. AMLODIPINE BESYLATE [Concomitant]
     Indication: HYPERTENSION
     Route: 048
     Dates: start: 19900101, end: 20070401
  6. SIMVASTATIN [Concomitant]
     Indication: CORONARY ARTERY DISEASE
     Route: 047
     Dates: start: 20050701, end: 20070501

REACTIONS (1)
  - RENAL CANCER [None]
